FAERS Safety Report 7270132-1 (Version None)
Quarter: 2011Q1

REPORT INFORMATION
  Report Type: 
  Country: None (occurrence: None)
  Receive Date: 20110202
  Receipt Date: 20110119
  Transmission Date: 20110831
  Serious: Yes (Other)
  Sender: FDA-Public Use
  Company Number: DE-ROCHE-756839

PATIENT
  Age: 67 Year
  Sex: Male

DRUGS (2)
  1. INTERFERON [Concomitant]
     Indication: METASTATIC RENAL CELL CARCINOMA
  2. AVASTIN [Suspect]
     Indication: METASTATIC RENAL CELL CARCINOMA
     Route: 042

REACTIONS (4)
  - NEOPLASM MALIGNANT [None]
  - TACHYCARDIA [None]
  - SICK SINUS SYNDROME [None]
  - ADAMS-STOKES SYNDROME [None]
